FAERS Safety Report 20852860 (Version 2)
Quarter: 2022Q3

REPORT INFORMATION
  Report Type: Spontaneous
  Country: FR (occurrence: FR)
  Receive Date: 20220520
  Receipt Date: 20220920
  Transmission Date: 20221027
  Serious: Yes (Hospitalization)
  Sender: FDA-Public Use
  Company Number: FR-AFSSAPS-MA20221614

PATIENT
  Age: 84 Year
  Sex: Female
  Weight: 61.5 kg

DRUGS (7)
  1. PANTOPRAZOLE [Suspect]
     Active Substance: PANTOPRAZOLE
     Indication: Prophylaxis
     Dosage: 20 MILLIGRAM, DAILY
     Route: 041
     Dates: start: 20220326, end: 20220329
  2. VISIPAQUE [Suspect]
     Active Substance: IODIXANOL
     Indication: Vertigo CNS origin
     Dosage: 70 MILLILITER, DAILY
     Route: 041
     Dates: start: 20220325, end: 20220326
  3. DOTAREM [Suspect]
     Active Substance: GADOTERATE MEGLUMINE
     Indication: Ischaemic stroke
     Dosage: 12 MILLILITER, IN TOTAL
     Route: 041
     Dates: start: 20220326
  4. TAHOR [Suspect]
     Active Substance: ATORVASTATIN CALCIUM
     Indication: Ischaemic stroke
     Dosage: 40 MILLIGRAM, DAILY
     Route: 048
     Dates: start: 20220326, end: 20220330
  5. BISOPROLOL FUMARATE [Concomitant]
     Active Substance: BISOPROLOL FUMARATE
     Indication: Ischaemic stroke
     Dosage: ()
     Route: 041
     Dates: start: 20220326
  6. OMNIPAQUE [Concomitant]
     Active Substance: IOHEXOL
     Indication: Ischaemic stroke
     Dosage: 750 MILLILITER, IN TOTAL
     Route: 041
     Dates: start: 20220331
  7. ELIQUIS [Concomitant]
     Active Substance: APIXABAN
     Indication: Ischaemic stroke
     Dosage: UNK
     Route: 041
     Dates: start: 20220326

REACTIONS (1)
  - Drug reaction with eosinophilia and systemic symptoms [Recovered/Resolved]

NARRATIVE: CASE EVENT DATE: 20220330
